FAERS Safety Report 10756702 (Version 3)
Quarter: 2015Q2

REPORT INFORMATION
  Report Type: Report from Study
  Country: KR (occurrence: KR)
  Receive Date: 20150202
  Receipt Date: 20150421
  Transmission Date: 20150821
  Serious: Yes (Hospitalization, Other)
  Sender: FDA-Public Use
  Company Number: PHHY2014KR169585

PATIENT
  Age: 52 Year
  Sex: Female
  Weight: 58 kg

DRUGS (5)
  1. AROMASIN [Concomitant]
     Active Substance: EXEMESTANE
     Indication: BREAST CANCER
     Dosage: 25 MG, QD
     Route: 065
     Dates: start: 20141111
  2. HYDROMORPHONE HCL [Concomitant]
     Active Substance: HYDROMORPHONE HYDROCHLORIDE
     Indication: PAIN
     Dosage: 24 MG, UNK
     Route: 065
     Dates: start: 20141012
  3. AFINITOR [Suspect]
     Active Substance: EVEROLIMUS
     Indication: BREAST CANCER
     Dosage: 10 MG, QD
     Route: 048
     Dates: start: 20141111, end: 20141226
  4. ALBUMIN HUMAN [Concomitant]
     Active Substance: ALBUMIN (HUMAN)
     Indication: HYPOALBUMINAEMIA
     Dosage: 20 G, UNK
     Route: 065
     Dates: start: 20141227, end: 20150119
  5. FUROSEMIDE. [Concomitant]
     Active Substance: FUROSEMIDE
     Indication: OEDEMA PERIPHERAL
     Dosage: 20 MG, UNK
     Route: 065
     Dates: start: 20141227, end: 20150128

REACTIONS (14)
  - Nausea [Unknown]
  - Chest discomfort [Unknown]
  - Decreased appetite [Unknown]
  - Fungal test positive [Unknown]
  - Ascites [Unknown]
  - Malignant neoplasm progression [Unknown]
  - Bacterial test positive [Unknown]
  - Dyspnoea [Unknown]
  - Hydronephrosis [Recovering/Resolving]
  - Abdominal distension [Recovering/Resolving]
  - Palpitations [Unknown]
  - Oedema peripheral [Recovering/Resolving]
  - Inferior vena cava syndrome [Unknown]
  - Metastases to liver [Unknown]

NARRATIVE: CASE EVENT DATE: 20141210
